FAERS Safety Report 9830582 (Version 1)
Quarter: 2014Q1

REPORT INFORMATION
  Report Type: Report from Study
  Country: CA (occurrence: CA)
  Receive Date: 20140120
  Receipt Date: 20140120
  Transmission Date: 20141002
  Serious: Yes (Other)
  Sender: FDA-Public Use
  Company Number: CA-BAYER-2014-009362

PATIENT
  Age: 54 Year
  Sex: Female

DRUGS (2)
  1. BETASERON [Suspect]
     Indication: MULTIPLE SCLEROSIS
     Dosage: 0.250 MG, UNK
     Dates: start: 20030101, end: 20130930
  2. DIOVAN [Concomitant]

REACTIONS (2)
  - Monoplegia [Recovered/Resolved]
  - Monoplegia [Recovered/Resolved]
